FAERS Safety Report 23679862 (Version 1)
Quarter: 2024Q1

REPORT INFORMATION
  Report Type: Spontaneous
  Country: CA (occurrence: CA)
  Receive Date: 20240327
  Receipt Date: 20240327
  Transmission Date: 20240410
  Serious: Yes (Other)
  Sender: FDA-Public Use
  Company Number: CA-ANIPHARMA-2024-CA-001808

PATIENT
  Age: 72 Year
  Sex: Female

DRUGS (22)
  1. CANDESARTAN [Suspect]
     Active Substance: CANDESARTAN
     Indication: Product used for unknown indication
  2. FLUTICASONE PROPIONATE [Suspect]
     Active Substance: FLUTICASONE PROPIONATE
  3. GABAPENTIN [Suspect]
     Active Substance: GABAPENTIN
     Dosage: 300 MG QID
  4. IRON [Suspect]
     Active Substance: IRON
  5. LIPITOR [Suspect]
     Active Substance: ATORVASTATIN CALCIUM
  6. MEPOLIZUMAB [Suspect]
     Active Substance: MEPOLIZUMAB
     Dosage: 100 MG Q4WK / 100 MG Q4WK / 100 MG Q4WK / 100 MG Q4WK
     Route: 058
  7. MEPOLIZUMAB [Suspect]
     Active Substance: MEPOLIZUMAB
     Dosage: 100 MG Q8H
     Route: 058
  8. METFORMIN [Suspect]
     Active Substance: METFORMIN HYDROCHLORIDE
     Dosage: 500 MG Q12H
  9. ROPINIROLE HYDROCHLORIDE [Suspect]
     Active Substance: ROPINIROLE HYDROCHLORIDE
  10. SYNTHROID [Suspect]
     Active Substance: LEVOTHYROXINE SODIUM
  11. TEMAZEPAM [Suspect]
     Active Substance: TEMAZEPAM
  12. INFLUENZA VIRUS VACCINE [Suspect]
     Active Substance: INFLUENZA VIRUS VACCINE
  13. TIOTROPIUM BROMIDE MONOHYDRATE [Suspect]
     Active Substance: TIOTROPIUM BROMIDE MONOHYDRATE
     Dosage: 2 DF DAILY
  14. VENTOLIN [Suspect]
     Active Substance: ALBUTEROL SULFATE
     Dosage: DOSE TEXT: UNK UNK, QD / DOSE TEXT: UNK
  15. ZENHALE [Suspect]
     Active Substance: FORMOTEROL FUMARATE\MOMETASONE FUROATE
     Dosage: 2 DF Q12H
  16. TYLENOL [Concomitant]
     Active Substance: ACETAMINOPHEN
  17. OMNARIS [Suspect]
     Active Substance: CICLESONIDE
  18. LANSOPRAZOLE [Suspect]
     Active Substance: LANSOPRAZOLE
  19. AMITRIPTYLINE [Suspect]
     Active Substance: AMITRIPTYLINE
  20. BETAHISTINE [Suspect]
     Active Substance: BETAHISTINE
  21. CYMBALTA [Suspect]
     Active Substance: DULOXETINE HYDROCHLORIDE
  22. DETROL [Suspect]
     Active Substance: TOLTERODINE TARTRATE

REACTIONS (10)
  - Asthenia [Unknown]
  - Product use issue [Unknown]
  - Asthma [Unknown]
  - Atrial fibrillation [Unknown]
  - Back pain [Unknown]
  - Gastrooesophageal reflux disease [Unknown]
  - Hypersensitivity [Unknown]
  - Nasal congestion [Unknown]
  - Tachycardia [Unknown]
  - Weight decreased [Unknown]
